FAERS Safety Report 5565876-3 (Version None)
Quarter: 2007Q4

REPORT INFORMATION
  Report Type: 
  Country: None (occurrence: None)
  Receive Date: 20071213
  Receipt Date: 20071128
  Transmission Date: 20080405
  Serious: Yes (Life-Threatening)
  Sender: FDA-Public Use
  Company Number: 2007S1009691

PATIENT
  Age: 38 Year
  Sex: Female

DRUGS (5)
  1. DILTIAZEM [Suspect]
     Indication: DRUG USE FOR UNKNOWN INDICATION
     Dosage: 900 MG;X1
  2. DIAZEPAM [Suspect]
     Indication: DRUG USE FOR UNKNOWN INDICATION
     Dosage: 10 MG;X1
  3. QUETIAPINE FUMARATE [Suspect]
     Indication: DRUG USE FOR UNKNOWN INDICATION
     Dosage: 100 MG;X1
  4. DIAZEPAM [Concomitant]
  5. QUETIAPINE [Concomitant]

REACTIONS (2)
  - HYPOTENSION [None]
  - OVERDOSE [None]
